FAERS Safety Report 4416093-1 (Version None)
Quarter: 2004Q3

REPORT INFORMATION
  Report Type: 
  Country: None (occurrence: None)
  Receive Date: 20040802
  Receipt Date: 20040715
  Transmission Date: 20050211
  Serious: Yes (Other)
  Sender: FDA-Public Use
  Company Number: SP-2004-001795

PATIENT
  Age: 42 Year
  Sex: Male

DRUGS (11)
  1. VOTUM 40 [Suspect]
     Indication: HYPERTENSION
     Dosage: 40 MG QD PO
     Route: 048
     Dates: start: 20040420
  2. VOTUM 40 [Suspect]
     Indication: NEPHROTIC SYNDROME
     Dosage: 40 MG QD PO
     Route: 048
     Dates: start: 20040420
  3. LOCOL [Suspect]
     Indication: NEPHROTIC SYNDROME
     Dosage: 80 MG DAILY PO
     Route: 048
     Dates: start: 20020101, end: 20040508
  4. SANDIMMUNE [Suspect]
     Indication: NEPHROTIC SYNDROME
     Dosage: 300 MG DAILY PO
     Route: 048
     Dates: start: 20020101
  5. NITRENDEPAT [Suspect]
     Dosage: 20 MG DAILY PO
     Route: 048
     Dates: start: 20040420, end: 20040508
  6. ENALAPRIL MALEATE [Concomitant]
  7. PENTOXIFYLLINE [Concomitant]
  8. TORASEMID [Concomitant]
  9. ALLOPURINOL [Concomitant]
  10. OMEPRAZOLE [Concomitant]
  11. MARCUMAR [Concomitant]

REACTIONS (1)
  - RHABDOMYOLYSIS [None]
